FAERS Safety Report 9746032 (Version 1)
Quarter: 2013Q4

REPORT INFORMATION
  Report Type: Spontaneous
  Country: GB (occurrence: None)
  Receive Date: 20131205
  Receipt Date: 20131205
  Transmission Date: 20140711
  Serious: Yes (Life-Threatening)
  Sender: FDA-Public Use
  Company Number: AUR-APL-2013-09986

PATIENT
  Age: 89 Year
  Sex: Female

DRUGS (2)
  1. MIRTAZAPINE (MIRTAZAPINE) [Suspect]
     Indication: AGITATION
     Dates: start: 20130101, end: 20130510
  2. LORAZEPAM (LORAZEPAM) [Concomitant]

REACTIONS (2)
  - Sedation [None]
  - Drug clearance decreased [None]
